FAERS Safety Report 15640213 (Version 2)
Quarter: 2018Q4

REPORT INFORMATION
  Report Type: Spontaneous
  Country: US (occurrence: US)
  Receive Date: 20181120
  Receipt Date: 20181130
  Transmission Date: 20190205
  Serious: No
  Sender: FDA-Public Use
  Company Number: US-PFIZER INC-2018465465

PATIENT
  Age: 84 Year
  Sex: Female
  Weight: 46 kg

DRUGS (3)
  1. IBRANCE [Suspect]
     Active Substance: PALBOCICLIB
     Dosage: 100 MG, CYCLIC (DAILY FOR 21 DAYS, THEN OFF FOR 5 DAYS)
     Route: 048
     Dates: start: 2018, end: 2018
  2. IBRANCE [Suspect]
     Active Substance: PALBOCICLIB
     Dosage: 75 MG, CYCLIC (DAILY 21 DAYS, THEN OFF FOR 7 DAYS)
     Route: 048
     Dates: start: 2018
  3. IBRANCE [Suspect]
     Active Substance: PALBOCICLIB
     Indication: BREAST CANCER FEMALE
     Dosage: 125 MG, CYCLIC (ONCE A DAY 21 DAYS ON, OFF FOR 5 DAYS)
     Route: 048
     Dates: start: 201808, end: 2018

REACTIONS (6)
  - Decreased appetite [Unknown]
  - Anxiety [Unknown]
  - Weight decreased [Unknown]
  - Hair texture abnormal [Not Recovered/Not Resolved]
  - Hair disorder [Not Recovered/Not Resolved]
  - Alopecia [Unknown]

NARRATIVE: CASE EVENT DATE: 2018
